FAERS Safety Report 8495185-4 (Version None)
Quarter: 2012Q3

REPORT INFORMATION
  Report Type: 
  Country: None (occurrence: None)
  Receive Date: 20120702
  Receipt Date: 20120702
  Transmission Date: 20120928
  Serious: Yes (Disabling)
  Sender: FDA-Public Use
  Company Number: None

PATIENT
  Sex: Female
  Weight: 58.0604 kg

DRUGS (1)
  1. LEVOFLOXACIN [Suspect]
     Indication: PNEUMONIA
     Dosage: 500 MG DAILY PO
     Route: 048
     Dates: start: 20120606, end: 20120619

REACTIONS (4)
  - MUSCULOSKELETAL PAIN [None]
  - TENDONITIS [None]
  - TENDON RUPTURE [None]
  - PAIN IN EXTREMITY [None]
